FAERS Safety Report 10082442 (Version 1)
Quarter: 2014Q2

REPORT INFORMATION
  Report Type: Spontaneous
  Country: IT (occurrence: IT)
  Receive Date: 20140416
  Receipt Date: 20140416
  Transmission Date: 20141212
  Serious: Yes (Other)
  Sender: FDA-Public Use
  Company Number: IT-ACTAVIS-2013-25422

PATIENT
  Age: 71 Year
  Sex: Male

DRUGS (9)
  1. OXALIPLATIN (UNKNOWN) [Suspect]
     Indication: COLON CANCER
     Dates: start: 20130227, end: 20131002
  2. OXALIPLATIN (UNKNOWN) [Suspect]
     Dates: start: 20130508, end: 20131025
  3. FLUOROURACIL [Suspect]
     Indication: COLON CANCER
     Route: 040
     Dates: start: 20130227, end: 20131002
  4. FLUOROURACIL [Suspect]
     Dates: start: 20130508, end: 20131025
  5. FLUOROURACIL [Suspect]
     Dates: start: 20130227, end: 20131002
  6. FLUOROURACIL [Suspect]
     Dates: start: 20130508, end: 20131025
  7. AVASTIN                            /01555201/ [Concomitant]
     Indication: PRODUCT USED FOR UNKNOWN INDICATION
     Dates: start: 20130227, end: 20131002
  8. AVASTIN                            /01555201/ [Concomitant]
     Dates: start: 20130508, end: 20131025
  9. LEDERFOLIN [Concomitant]
     Indication: PRODUCT USED FOR UNKNOWN INDICATION
     Route: 065
     Dates: start: 20130227, end: 20131002

REACTIONS (3)
  - Anaemia [Unknown]
  - Neutropenia [Unknown]
  - Thrombocytopenia [Unknown]
